FAERS Safety Report 5009375-6 (Version None)
Quarter: 2006Q2

REPORT INFORMATION
  Report Type: 
  Country: None (occurrence: None)
  Receive Date: 20060522
  Receipt Date: 20060509
  Transmission Date: 20061013
  Serious: Yes (Death)
  Sender: FDA-Public Use
  Company Number: 2005131358

PATIENT
  Age: 57 Year
  Sex: Female

DRUGS (1)
  1. CELEBREX [Suspect]
     Indication: ARTHRITIS
     Dosage: 200 MG (200  MG, 1 IN 1 D)
     Dates: end: 20050502

REACTIONS (1)
  - MYOCARDIAL INFARCTION [None]
